FAERS Safety Report 12120867 (Version 1)
Quarter: 2016Q1

REPORT INFORMATION
  Report Type: Spontaneous
  Country: US (occurrence: US)
  Receive Date: 20160226
  Receipt Date: 20160226
  Transmission Date: 20160526
  Serious: No
  Sender: FDA-Public Use
  Company Number: US-ALLERGAN-1310048US

PATIENT
  Age: 62 Year
  Sex: Female

DRUGS (3)
  1. REFRESH OPTIVE SENSITIVE [Suspect]
     Active Substance: CARBOXYMETHYLCELLULOSE SODIUM\GLYCERIN
     Indication: DRY EYE
     Route: 047
  2. STEROID INJECTIONS NOS [Concomitant]
     Indication: BACK DISORDER
     Dosage: UNK
     Dates: start: 201303
  3. IBUPROFEN. [Concomitant]
     Active Substance: IBUPROFEN
     Indication: BACK DISORDER
     Dosage: UNK

REACTIONS (2)
  - Eye pain [Recovered/Resolved]
  - Ocular discomfort [Recovered/Resolved]
